FAERS Safety Report 23059224 (Version 2)
Quarter: 2023Q4

REPORT INFORMATION
  Report Type: Spontaneous
  Country: US (occurrence: US)
  Receive Date: 20231012
  Receipt Date: 20231025
  Transmission Date: 20240110
  Serious: No
  Sender: FDA-Public Use
  Company Number: US-PFIZER INC-202300304862

PATIENT
  Age: 73 Year
  Sex: Male

DRUGS (4)
  1. CIBINQO [Suspect]
     Active Substance: ABROCITINIB
     Indication: Rash erythematous
     Dosage: TAKE 1 TABLET ONCE A DAY
     Route: 048
  2. CIBINQO [Suspect]
     Active Substance: ABROCITINIB
     Indication: Dermatitis atopic
  3. CIBINQO [Suspect]
     Active Substance: ABROCITINIB
     Indication: Post inflammatory pigmentation change
  4. CIBINQO [Suspect]
     Active Substance: ABROCITINIB
     Indication: Xerosis

REACTIONS (2)
  - Wound [Unknown]
  - Skin ulcer [Unknown]
